FAERS Safety Report 6954930-7 (Version None)
Quarter: 2010Q3

REPORT INFORMATION
  Report Type: 
  Country: None (occurrence: None)
  Receive Date: 20100830
  Receipt Date: 20100817
  Transmission Date: 20110219
  Serious: Yes (Other)
  Sender: FDA-Public Use
  Company Number: PHFR2010GB02387

PATIENT
  Sex: Female

DRUGS (1)
  1. ZOLEDRONIC ACID [Suspect]

REACTIONS (6)
  - ABDOMINAL DISCOMFORT [None]
  - FLUSHING [None]
  - NAUSEA [None]
  - ORAL PAIN [None]
  - PAIN IN JAW [None]
  - PYREXIA [None]
